FAERS Safety Report 8718295 (Version 2)
Quarter: 2013Q4

REPORT INFORMATION
  Report Type: Spontaneous
  Country: US (occurrence: US)
  Receive Date: 20120810
  Receipt Date: 20131031
  Transmission Date: 20140711
  Serious: No
  Sender: FDA-Public Use
  Company Number: US-009507513-2012SP036525

PATIENT
  Age: 78 Year
  Sex: Female
  Weight: 58.5 kg

DRUGS (2)
  1. CLARITIN [Suspect]
     Indication: SINUS DISORDER
     Dosage: UNK UNK, QAM
     Route: 048
     Dates: start: 20120620, end: 20120621
  2. CLARITIN [Suspect]
     Indication: MEDICAL OBSERVATION
     Dosage: 10 MG, QD
     Route: 048
     Dates: start: 201205, end: 201206

REACTIONS (2)
  - Drug ineffective [Unknown]
  - Diarrhoea [Not Recovered/Not Resolved]
